FAERS Safety Report 6369390-7 (Version None)
Quarter: 2009Q3

REPORT INFORMATION
  Report Type: 
  Country: None (occurrence: None)
  Receive Date: 20090917
  Receipt Date: 20090908
  Transmission Date: 20100115
  Serious: Yes (Other)
  Sender: FDA-Public Use
  Company Number: CIP09001679

PATIENT
  Age: 69 Year
  Sex: Female
  Weight: 84.1 kg

DRUGS (15)
  1. ACTONEL [Suspect]
     Indication: OSTEOPOROSIS
     Dosage: 150MG ONE DOSE ONLY, ORAL
     Route: 048
     Dates: start: 20090610, end: 20090610
  2. ASPIRIN [Concomitant]
  3. MULTIVITAMIN /00831701/ (VITAMINS NOS) [Concomitant]
  4. HORMONES NOS(HORMONAL REPLACEMENT) [Concomitant]
  5. UNIVASC [Concomitant]
  6. VERELAN [Concomitant]
  7. FOLATE (FOLIC ACID) [Concomitant]
  8. CRESTOR [Concomitant]
  9. NEXIUM [Concomitant]
  10. CALCIUM (CALCIUM) [Concomitant]
  11. COENZYM Q10 (UBIDECARENOUS) [Concomitant]
  12. VITAMIN E /00110501/ (TOCOPHEROL) [Concomitant]
  13. VITAMIN C /00008001/ (ASCORBIC ACID) [Concomitant]
  14. FLAXSEED OIL (LINUM USITATISSIMUM SEED OIL) [Concomitant]
  15. ERGOCALCIFEROL [Concomitant]

REACTIONS (18)
  - ABDOMINAL DISCOMFORT [None]
  - ABDOMINAL PAIN UPPER [None]
  - ARTHRALGIA [None]
  - BONE PAIN [None]
  - CHILLS [None]
  - DECREASED APPETITE [None]
  - DEHYDRATION [None]
  - DIARRHOEA [None]
  - DYSPEPSIA [None]
  - GASTROINTESTINAL PAIN [None]
  - GASTROOESOPHAGEAL REFLUX DISEASE [None]
  - HEADACHE [None]
  - HYPOPHAGIA [None]
  - MYALGIA [None]
  - NAUSEA [None]
  - PAIN [None]
  - PHOTOPHOBIA [None]
  - VISION BLURRED [None]
